FAERS Safety Report 7904737-9 (Version None)
Quarter: 2011Q4

REPORT INFORMATION
  Report Type: 
  Country: None (occurrence: None)
  Receive Date: 20111109
  Receipt Date: 20111102
  Transmission Date: 20120403
  Serious: Yes (Death, Hospitalization, Other)
  Sender: FDA-Public Use
  Company Number: FR-NOVOPROD-336849

PATIENT

DRUGS (6)
  1. VALSARTAN [Concomitant]
     Dosage: 80 MG, QD
     Route: 048
  2. VICTOZA [Suspect]
     Indication: TYPE 2 DIABETES MELLITUS
     Dosage: 1.8 MG, QD
     Route: 058
     Dates: start: 20110408, end: 20110711
  3. GLUCOPHAGE [Concomitant]
     Dosage: 3 G, QD
     Route: 048
     Dates: start: 20080101
  4. DIAMICRON [Concomitant]
     Dosage: 120 MG, QD
     Route: 048
     Dates: start: 20090101
  5. CRESTOR [Concomitant]
     Dosage: 5 MG, QD
     Route: 048
  6. ALLOPURINOL [Concomitant]
     Dosage: 200 MG, QD
     Route: 048

REACTIONS (1)
  - PANCREATIC CARCINOMA [None]
